FAERS Safety Report 12580946 (Version 2)
Quarter: 2016Q3

REPORT INFORMATION
  Report Type: Report from Study
  Country: US (occurrence: US)
  Receive Date: 20160721
  Receipt Date: 20160922
  Transmission Date: 20161109
  Serious: Yes (Other)
  Sender: FDA-Public Use
  Company Number: US-JNJFOC-20160714774

PATIENT
  Sex: Male

DRUGS (8)
  1. RAPAFLO [Concomitant]
     Active Substance: SILODOSIN
  2. PANTOPRAZOLE [Concomitant]
     Active Substance: PANTOPRAZOLE SODIUM
  3. FINASTERIDE. [Concomitant]
     Active Substance: FINASTERIDE
  4. IMBRUVICA [Suspect]
     Active Substance: IBRUTINIB
     Indication: MANTLE CELL LYMPHOMA
     Route: 048
     Dates: start: 20150714
  5. SINGULAIR [Concomitant]
     Active Substance: MONTELUKAST SODIUM
  6. FOLIC ACID. [Concomitant]
     Active Substance: FOLIC ACID
  7. LEVOFLOXACIN. [Concomitant]
     Active Substance: LEVOFLOXACIN
  8. LIPITOR [Concomitant]
     Active Substance: ATORVASTATIN CALCIUM

REACTIONS (4)
  - Herpes zoster [Unknown]
  - Retinal detachment [Not Recovered/Not Resolved]
  - Pollakiuria [Unknown]
  - Pneumonia [Recovering/Resolving]
